FAERS Safety Report 24886881 (Version 1)
Quarter: 2025Q1

REPORT INFORMATION
  Report Type: Spontaneous
  Country: US (occurrence: US)
  Receive Date: 20250127
  Receipt Date: 20250127
  Transmission Date: 20250408
  Serious: No
  Sender: SANDOZ
  Company Number: US-SANDOZ-SDZ2024US101174

PATIENT
  Sex: Female

DRUGS (1)
  1. COMBIPATCH [Suspect]
     Active Substance: ESTRADIOL\NORETHINDRONE ACETATE
     Indication: Menopause
     Route: 062
     Dates: start: 202410

REACTIONS (5)
  - Inappropriate schedule of product administration [Not Recovered/Not Resolved]
  - Product administered at inappropriate site [Not Recovered/Not Resolved]
  - Product adhesion issue [Recovered/Resolved]
  - Off label use [Not Recovered/Not Resolved]
  - Therapeutic product effect variable [Not Recovered/Not Resolved]

NARRATIVE: CASE EVENT DATE: 20240101
